FAERS Safety Report 11516318 (Version 2)
Quarter: 2015Q3

REPORT INFORMATION
  Report Type: Other
  Country: TH (occurrence: TH)
  Receive Date: 20150917
  Receipt Date: 20150929
  Transmission Date: 20151125
  Serious: Yes (Other)
  Sender: FDA-Public Use
  Company Number: TH-DEXPHARM-20151127

PATIENT
  Age: 54 Year
  Sex: Female

DRUGS (7)
  1. ATORVASTATIN [Concomitant]
     Active Substance: ATORVASTATIN
     Dosage: 0.5 TAB ONCE DAILY
  2. SIMVASTATIN. [Concomitant]
     Active Substance: SIMVASTATIN
     Dates: start: 2009
  3. VALSARTAN. [Concomitant]
     Active Substance: VALSARTAN
     Dosage: 0.5 TAB ONCE DAILY
  4. DICLOFENAC POTASSIUM. [Suspect]
     Active Substance: DICLOFENAC POTASSIUM
  5. ELTROXIN [Suspect]
     Active Substance: LEVOTHYROXINE
  6. DIFFLAM [Concomitant]
     Active Substance: BENZYDAMINE HYDROCHLORIDE
  7. HYDROCHLOROTHIAZIDE. [Suspect]
     Active Substance: HYDROCHLOROTHIAZIDE
     Dosage: 1/4 TABLET OF 50 MG A DAY

REACTIONS (2)
  - Candida infection [Unknown]
  - Oral lichen planus [Not Recovered/Not Resolved]
